FAERS Safety Report 11107065 (Version 1)
Quarter: 2015Q2

REPORT INFORMATION
  Report Type: Spontaneous
  Country: IN (occurrence: None)
  Receive Date: 20150511
  Receipt Date: 20150511
  Transmission Date: 20150821
  Serious: Yes (Disabling)
  Sender: FDA-Public Use
  Company Number: None

PATIENT
  Age: 32 Year
  Sex: Male
  Weight: 85 kg

DRUGS (2)
  1. PIMOZIDE [Concomitant]
     Active Substance: PIMOZIDE
  2. RISPERDAL CONSTA [Suspect]
     Active Substance: RISPERIDONE
     Indication: DELUSION
     Dosage: 37.5 MG INJ AS NEEDED INTO MUSCLE
     Route: 030
     Dates: start: 20061101, end: 20150509

REACTIONS (10)
  - Nasal congestion [None]
  - Pain [None]
  - Lethargy [None]
  - Priapism [None]
  - Retrograde ejaculation [None]
  - Chest discomfort [None]
  - Feeling abnormal [None]
  - Dysgeusia [None]
  - Dyspnoea [None]
  - Ejaculation disorder [None]

NARRATIVE: CASE EVENT DATE: 20061101
